FAERS Safety Report 9054103 (Version 1)
Quarter: 2013Q1

REPORT INFORMATION
  Report Type: Spontaneous
  Country: FR (occurrence: FR)
  Receive Date: 20130208
  Receipt Date: 20130208
  Transmission Date: 20140127
  Serious: Yes (Hospitalization)
  Sender: FDA-Public Use
  Company Number: FR-PFIZER INC-2013049543

PATIENT
  Age: 82 Year
  Sex: Female

DRUGS (7)
  1. CORDARONE [Suspect]
     Indication: ATRIAL FIBRILLATION
     Dosage: UNK
     Route: 048
  2. SEROPRAM [Suspect]
     Indication: PRODUCT USED FOR UNKNOWN INDICATION
     Dosage: UNK
     Route: 048
  3. THEOPHYLLINE [Interacting]
     Indication: ASTHMA
     Dosage: UNK
     Route: 048
     Dates: end: 20120925
  4. KARDEGIC [Concomitant]
     Dosage: UNK
  5. LASILIX [Concomitant]
     Dosage: UNK
  6. SYMBICORT TURBOHALER [Concomitant]
     Indication: ASTHMA
     Dosage: UNK
  7. IMOVANE [Concomitant]
     Dosage: UNK

REACTIONS (5)
  - Drug interaction [Unknown]
  - Convulsion [Recovered/Resolved]
  - Drug clearance decreased [None]
  - Overdose [None]
  - Toxicity to various agents [None]
